FAERS Safety Report 24113171 (Version 1)
Quarter: 2024Q3

REPORT INFORMATION
  Report Type: Spontaneous
  Country: GR (occurrence: GR)
  Receive Date: 20240719
  Receipt Date: 20240719
  Transmission Date: 20241016
  Serious: Yes (Death, Hospitalization)
  Sender: AMGEN
  Company Number: GR-AMGEN-GRCSP2024136347

PATIENT
  Age: 45 Year
  Sex: Male

DRUGS (5)
  1. XGEVA [Suspect]
     Active Substance: DENOSUMAB
     Indication: Metastases to central nervous system
     Dosage: 120 MILLIGRAM, Q3MO FOR 3 MONTHS
     Route: 065
     Dates: start: 202003
  2. SORAFENIB [Concomitant]
     Active Substance: SORAFENIB
     Indication: Metastases to lymph nodes
     Dosage: UNK
     Route: 065
     Dates: start: 202002
  3. DABRAFENIB [Concomitant]
     Active Substance: DABRAFENIB
     Indication: Metastases to central nervous system
     Dosage: 130 MILLIGRAM, BID
     Route: 048
     Dates: start: 202003
  4. TRAMETINIB [Concomitant]
     Active Substance: TRAMETINIB
     Indication: Metastases to central nervous system
     Dosage: 2 MILLIGRAM, QD
     Route: 048
     Dates: start: 202003
  5. CABOZANTINIB [Concomitant]
     Active Substance: CABOZANTINIB
     Dosage: 60 MILLIGRAM

REACTIONS (3)
  - Post procedural haemorrhage [Fatal]
  - COVID-19 [Unknown]
  - Laryngeal oedema [Unknown]
